FAERS Safety Report 6970245-5 (Version None)
Quarter: 2010Q3

REPORT INFORMATION
  Report Type: 
  Country: None (occurrence: None)
  Receive Date: 20100908
  Receipt Date: 20100826
  Transmission Date: 20110219
  Serious: Yes (Other)
  Sender: FDA-Public Use
  Company Number: PHFR2010GB01623

PATIENT
  Sex: Female

DRUGS (4)
  1. ZOLEDRONIC [Suspect]
     Indication: OSTEOPOROSIS
     Dosage: 5 MG YEARLY
     Route: 042
     Dates: start: 20090811
  2. LANSOPRAZOLE [Concomitant]
     Indication: DYSPEPSIA
     Dosage: 30 MGUNK
     Route: 048
     Dates: start: 20050801
  3. CACIT D3 [Concomitant]
     Indication: OSTEOPOROSIS
     Dosage: QD
     Route: 048
     Dates: start: 20050101
  4. BECONASE [Concomitant]
     Dosage: PRN
     Route: 045
     Dates: start: 20090901, end: 20091001

REACTIONS (5)
  - DIZZINESS [None]
  - FATIGUE [None]
  - FOOT FRACTURE [None]
  - HEADACHE [None]
  - PAIN IN EXTREMITY [None]
